FAERS Safety Report 11227865 (Version 1)
Quarter: 2015Q2

REPORT INFORMATION
  Report Type: Spontaneous
  Country: GB (occurrence: GB)
  Receive Date: 20150630
  Receipt Date: 20150630
  Transmission Date: 20150821
  Serious: Yes (Other)
  Sender: FDA-Public Use
  Company Number: GB-TEVA-573282ACC

PATIENT
  Age: 63 Year
  Sex: Male
  Weight: 98.42 kg

DRUGS (7)
  1. BENDROFLUAZIDE [Concomitant]
     Active Substance: BENDROFLUMETHIAZIDE
  2. CIPROFLOXACIN. [Interacting]
     Active Substance: CIPROFLOXACIN
     Indication: PROSTATITIS
     Dosage: 1000 MILLIGRAM DAILY;
     Route: 048
     Dates: start: 20150501
  3. CITALOPRAM [Concomitant]
     Active Substance: CITALOPRAM HYDROBROMIDE
  4. LISINOPRIL. [Concomitant]
     Active Substance: LISINOPRIL
  5. FELODIPINE. [Concomitant]
     Active Substance: FELODIPINE
  6. CIPROFLOXACIN. [Suspect]
     Active Substance: CIPROFLOXACIN
     Indication: PROSTATITIS
     Dosage: 1000 MILLIGRAM DAILY; 500MG TWICE DAILY CHANGED TO 250MG 4 TIMES DAILY TO EVEN OUT THE TOXIC PEAKS
     Route: 048
     Dates: end: 20150601
  7. SIMVASTATIN. [Concomitant]
     Active Substance: SIMVASTATIN

REACTIONS (10)
  - Palpitations [Recovered/Resolved with Sequelae]
  - Blood caffeine increased [Recovered/Resolved]
  - Malaise [Unknown]
  - Panic attack [Recovered/Resolved with Sequelae]
  - Anxiety [Recovered/Resolved with Sequelae]
  - Heart rate increased [Unknown]
  - Insomnia [Recovered/Resolved]
  - Hypertension [Not Recovered/Not Resolved]
  - Agitation [Unknown]
  - Drug interaction [Unknown]

NARRATIVE: CASE EVENT DATE: 20150501
